FAERS Safety Report 14449989 (Version 1)
Quarter: 2018Q1

REPORT INFORMATION
  Report Type: Spontaneous
  Country: CH (occurrence: CH)
  Receive Date: 20180129
  Receipt Date: 20180129
  Transmission Date: 20180509
  Serious: Yes (Other)
  Sender: FDA-Public Use
  Company Number: CH-IPCA LABORATORIES LIMITED-IPC-2018-CH-000122

PATIENT
  Age: 76 Year
  Sex: Male

DRUGS (1)
  1. METOPROLOL. [Suspect]
     Active Substance: METOPROLOL
     Indication: HEART RATE
     Dosage: 1 MG, EVERY 5 MIN
     Route: 042

REACTIONS (1)
  - Orthopnoea [Unknown]
